FAERS Safety Report 7131309-9 (Version None)
Quarter: 2010Q4

REPORT INFORMATION
  Report Type: 
  Country: None (occurrence: None)
  Receive Date: 20101201
  Receipt Date: 20101119
  Transmission Date: 20110411
  Serious: Yes (Hospitalization)
  Sender: FDA-Public Use
  Company Number: GXKR2010GB13187

PATIENT
  Age: 63 Year
  Sex: Male
  Weight: 76 kg

DRUGS (2)
  1. SIMVASTATIN [Suspect]
     Route: 048
  2. CARDICOR [Suspect]
     Route: 048

REACTIONS (3)
  - ANGINA PECTORIS [None]
  - DYSPNOEA [None]
  - DYSPNOEA EXERTIONAL [None]
